FAERS Safety Report 6519846-9 (Version None)
Quarter: 2009Q4

REPORT INFORMATION
  Report Type: 
  Country: None (occurrence: None)
  Receive Date: 20091228
  Receipt Date: 20091228
  Transmission Date: 20100525
  Serious: Yes (Life-Threatening)
  Sender: FDA-Public Use
  Company Number: None

PATIENT
  Age: 45 Year
  Sex: Female
  Weight: 76.7 kg

DRUGS (1)
  1. ACYCLOVIR [Suspect]
     Indication: ENCEPHALITIS POST VARICELLA
     Dosage: 700 MG Q 8 HRS IV
     Route: 042
     Dates: start: 20091010, end: 20091014

REACTIONS (1)
  - BLOOD CREATININE INCREASED [None]
